FAERS Safety Report 8419278-2 (Version None)
Quarter: 2012Q2

REPORT INFORMATION
  Report Type: 
  Country: None (occurrence: None)
  Receive Date: 20120607
  Receipt Date: 20120531
  Transmission Date: 20120825
  Serious: Yes (Hospitalization, Other)
  Sender: FDA-Public Use
  Company Number: AU-ROCHE-1072092

PATIENT
  Sex: Female

DRUGS (15)
  1. ACETAMINOPHEN W/ CODEINE [Concomitant]
  2. MOTILIUM (AUSTRALIA) [Concomitant]
  3. PREDNISONE [Concomitant]
  4. DILANTIN [Concomitant]
  5. OXYCODONE HCL [Concomitant]
  6. MOBIC [Concomitant]
  7. INDERAL [Concomitant]
  8. FOLIC ACID [Concomitant]
  9. ACTEMRA [Suspect]
     Indication: RHEUMATOID ARTHRITIS
     Dosage: 26.4 ML
     Route: 065
  10. CRESTOR [Concomitant]
  11. ASPRIN-EC [Concomitant]
  12. MS CONTIN [Concomitant]
  13. EFFEXOR [Concomitant]
  14. METFORMIN HCL [Concomitant]
  15. DITROPAN [Concomitant]

REACTIONS (2)
  - CONVULSION [None]
  - ARTHRALGIA [None]
